FAERS Safety Report 8560062-7 (Version None)
Quarter: 2012Q2

REPORT INFORMATION
  Report Type: 
  Country: None (occurrence: None)
  Receive Date: 20120418
  Receipt Date: 20080708
  Transmission Date: 20120825
  Serious: Yes (Other)
  Sender: FDA-Public Use
  Company Number: PHEH2008US06152

PATIENT
  Sex: Male

DRUGS (1)
  1. ELIDEL [Suspect]
     Indication: ECZEMA
     Dosage: TOPICAL
     Route: 061
     Dates: start: 20031001

REACTIONS (1)
  - NON-HODGKIN'S LYMPHOMA [None]
